FAERS Safety Report 8860435 (Version 1)
Quarter: 2012Q4

REPORT INFORMATION
  Report Type: 
  Country: US (occurrence: US)
  Receive Date: 20121025
  Receipt Date: 20121025
  Transmission Date: 20130627
  Serious: Yes (Other)
  Sender: FDA-Public Use
  Company Number: PHHY2012US094203

PATIENT

DRUGS (1)
  1. NILOTINIB [Suspect]
     Dosage: 400 mg, in the morning
     Route: 048

REACTIONS (2)
  - Alanine aminotransferase increased [Unknown]
  - Blood creatine phosphokinase increased [Unknown]
